FAERS Safety Report 9168944 (Version 2)
Quarter: 2013Q2

REPORT INFORMATION
  Report Type: Spontaneous
  Country: IL (occurrence: IL)
  Receive Date: 20130318
  Receipt Date: 20130412
  Transmission Date: 20140414
  Serious: Yes (Hospitalization, Other)
  Sender: FDA-Public Use
  Company Number: IL-PFIZER INC-2013085514

PATIENT
  Age: 11 Year
  Sex: Male

DRUGS (5)
  1. GENOTROPIN [Suspect]
     Indication: GROWTH HORMONE DEFICIENCY
     Dosage: 1.2 MG AND 0.04 MG/KG, 1X/DAY
     Dates: start: 201105, end: 201303
  2. ELTROXIN [Concomitant]
  3. HYDROCORTISON [Concomitant]
  4. PRIZMA [Concomitant]
  5. VITAMIN D [Concomitant]

REACTIONS (1)
  - Medulloblastoma recurrent [Not Recovered/Not Resolved]
